FAERS Safety Report 7129792-8 (Version None)
Quarter: 2010Q4

REPORT INFORMATION
  Report Type: 
  Country: None (occurrence: None)
  Receive Date: 20101130
  Receipt Date: 20101117
  Transmission Date: 20110411
  Serious: Yes (Hospitalization)
  Sender: FDA-Public Use
  Company Number: DE-GENENTECH-309934

PATIENT
  Sex: Female

DRUGS (3)
  1. LUCENTIS [Suspect]
     Indication: MACULAR DEGENERATION
     Route: 031
  2. LUCENTIS [Suspect]
     Dosage: UNK
     Route: 031
     Dates: start: 20090723
  3. LUCENTIS [Suspect]
     Dosage: UNK
     Route: 031
     Dates: start: 20090925

REACTIONS (1)
  - RENAL DISORDER [None]
